FAERS Safety Report 16402585 (Version 1)
Quarter: 2019Q2

REPORT INFORMATION
  Report Type: Spontaneous
  Country: US (occurrence: US)
  Receive Date: 20190607
  Receipt Date: 20190607
  Transmission Date: 20190711
  Serious: No
  Sender: FDA-Public Use
  Company Number: US-MALLINCKRODT-T201902011

PATIENT
  Sex: Female
  Weight: 86 kg

DRUGS (2)
  1. HYDROCODONE/ACETAMINOPHEN [Suspect]
     Active Substance: ACETAMINOPHEN\HYDROCODONE
     Indication: PAIN
     Dosage: 10/325MG, EIGHT TABLETS A DAY
     Route: 065
     Dates: start: 2005
  2. HYDROCODONE/ACETAMINOPHEN [Suspect]
     Active Substance: ACETAMINOPHEN\HYDROCODONE
     Dosage: 10/325MG, THREE TABLETS A DAY
     Route: 065

REACTIONS (2)
  - Drug tolerance [Unknown]
  - Drug ineffective [Unknown]
